FAERS Safety Report 5496990-9 (Version None)
Quarter: 2007Q4

REPORT INFORMATION
  Report Type: 
  Country: None (occurrence: None)
  Receive Date: 20071017
  Receipt Date: 20070713
  Transmission Date: 20080405
  Serious: Yes (Other)
  Sender: FDA-Public Use
  Company Number: 2007057773

PATIENT
  Age: 21 Year
  Sex: Female
  Weight: 63 kg

DRUGS (9)
  1. DEPO-SUBQ PROVERA 104 [Suspect]
     Indication: CONTRACEPTION
     Dosage: 104 MG (104 MG, INJECTION ADMINISTRATION), SUBCUTANEOUS
     Route: 058
     Dates: start: 20070129, end: 20070129
  2. LIPITOR [Concomitant]
  3. KLONOPIN [Concomitant]
  4. FLEXERIL [Concomitant]
  5. SOMA [Concomitant]
  6. ULTRAM [Concomitant]
  7. PERCOCET [Concomitant]
  8. LAMICTAL [Concomitant]
  9. ACIPHEX [Concomitant]

REACTIONS (1)
  - INJECTION SITE NECROSIS [None]
